FAERS Safety Report 13710119 (Version 1)
Quarter: 2017Q3

REPORT INFORMATION
  Report Type: Spontaneous
  Country: US (occurrence: US)
  Receive Date: 20170703
  Receipt Date: 20170703
  Transmission Date: 20171127
  Serious: No
  Sender: FDA-Public Use
  Company Number: US-TEVA-754872ACC

PATIENT
  Sex: Female

DRUGS (1)
  1. LIDOCAINE TOPICAL 5 PERCENT PATCH [Suspect]
     Active Substance: LIDOCAINE
     Dosage: PATCH

REACTIONS (2)
  - Product odour abnormal [Unknown]
  - Eye irritation [Recovered/Resolved]

NARRATIVE: CASE EVENT DATE: 20170324
